FAERS Safety Report 25706299 (Version 1)
Quarter: 2025Q3

REPORT INFORMATION
  Report Type: Spontaneous
  Country: US (occurrence: None)
  Receive Date: 20250819
  Receipt Date: 20250819
  Transmission Date: 20251021
  Serious: Yes (Hospitalization)
  Sender: FDA-CTU
  Company Number: None

PATIENT
  Sex: Female

DRUGS (3)
  1. TACROLIMUS [Suspect]
     Active Substance: TACROLIMUS
     Indication: Liver transplant
     Dosage: 4 MG TWCIE A DAY ORAL ?
     Route: 048
     Dates: start: 20230720
  2. TACROLIMUS [Suspect]
     Active Substance: TACROLIMUS
     Indication: Renal transplant
  3. ENTECAVIR [Suspect]
     Active Substance: ENTECAVIR
     Indication: Liver transplant
     Route: 048
     Dates: start: 20230724

REACTIONS (1)
  - Blood pressure increased [None]
